FAERS Safety Report 19641977 (Version 1)
Quarter: 2021Q3

REPORT INFORMATION
  Report Type: Spontaneous
  Country: US (occurrence: US)
  Receive Date: 20210730
  Receipt Date: 20210730
  Transmission Date: 20211014
  Serious: Yes (Hospitalization, Other)
  Sender: FDA-Public Use
  Company Number: US-BRISTOL-MYERS SQUIBB COMPANY-BMS-2021-070875

PATIENT
  Age: 73 Year
  Sex: Female

DRUGS (1)
  1. AZTREONAM. [Suspect]
     Active Substance: AZTREONAM
     Indication: CYSTITIS
     Dosage: DECREASE DOSE
     Route: 065

REACTIONS (1)
  - Toxic encephalopathy [Recovering/Resolving]
